FAERS Safety Report 6332407-X (Version None)
Quarter: 2009Q3

REPORT INFORMATION
  Report Type: 
  Country: None (occurrence: None)
  Receive Date: 20090828
  Receipt Date: 20090819
  Transmission Date: 20100115
  Serious: Yes (Other)
  Sender: FDA-Public Use
  Company Number: BR-ASTRAZENECA-2009SE09250

PATIENT
  Age: 61 Year
  Sex: Female

DRUGS (8)
  1. SYMBICORT [Suspect]
     Indication: ASTHMA
     Dosage: 320/9 MCG
     Route: 055
     Dates: start: 20080101, end: 20090101
  2. XENICAL [Concomitant]
     Indication: HEPATIC STEATOSIS
     Route: 048
     Dates: start: 20060101
  3. PRESSAT [Concomitant]
     Indication: HYPERTENSION
     Route: 048
  4. VENLAFAXINE HYDROCHLORIDE [Concomitant]
     Indication: DEPRESSION
     Route: 048
  5. VENLAFAXINE HYDROCHLORIDE [Concomitant]
     Route: 048
  6. FLUOXETINE [Concomitant]
     Indication: DEPRESSION
     Route: 048
     Dates: start: 20070101
  7. RIVOTRIL [Concomitant]
     Indication: ANXIOLYTIC THERAPY
     Route: 048
     Dates: start: 20070101
  8. BIOMAG [Concomitant]
     Indication: MEDICAL DIET
     Route: 048
     Dates: start: 20070101

REACTIONS (3)
  - ABDOMINAL HERNIA [None]
  - DYSPNOEA [None]
  - WEIGHT INCREASED [None]
